FAERS Safety Report 10360617 (Version 1)
Quarter: 2014Q3

REPORT INFORMATION
  Report Type: Spontaneous
  Country: FR (occurrence: FR)
  Receive Date: 20140804
  Receipt Date: 20140804
  Transmission Date: 20150326
  Serious: Yes (Life-Threatening, Hospitalization)
  Sender: FDA-Public Use
  Company Number: FR-SA-2014SA102949

PATIENT
  Age: 72 Year
  Sex: Female
  Weight: 88 kg

DRUGS (5)
  1. APROVEL [Suspect]
     Active Substance: IRBESARTAN
     Route: 048
     Dates: start: 20140715, end: 20140715
  2. SERESTA [Suspect]
     Active Substance: OXAZEPAM
     Route: 048
     Dates: start: 20140715, end: 20140715
  3. BACLOFEN. [Suspect]
     Active Substance: BACLOFEN
     Route: 048
     Dates: start: 20140715, end: 20140715
  4. FLUOXETINE HYDROCHLORIDE. [Suspect]
     Active Substance: FLUOXETINE HYDROCHLORIDE
     Route: 048
     Dates: start: 20140715, end: 20140715
  5. PROPRANOLOL [Suspect]
     Active Substance: PROPRANOLOL\PROPRANOLOL HYDROCHLORIDE
     Route: 048
     Dates: start: 20140715, end: 20140715

REACTIONS (3)
  - Overdose [Unknown]
  - Cardiogenic shock [Recovered/Resolved]
  - Renal failure acute [Recovering/Resolving]

NARRATIVE: CASE EVENT DATE: 20140715
